FAERS Safety Report 10533994 (Version 2)
Quarter: 2014Q4

REPORT INFORMATION
  Report Type: Spontaneous
  Country: HU (occurrence: HU)
  Receive Date: 20141022
  Receipt Date: 20141112
  Transmission Date: 20150529
  Serious: Yes (Other)
  Sender: FDA-Public Use
  Company Number: HU-AMGEN-HUNSP2014080799

PATIENT
  Age: 84 Year
  Sex: Female
  Weight: 66 kg

DRUGS (9)
  1. CONCOR [Concomitant]
     Active Substance: BISOPROLOL FUMARATE
  2. COVEREX [Concomitant]
  3. AMLODIPIN                          /00972401/ [Concomitant]
     Active Substance: AMLODIPINE BESYLATE
  4. ACETYLSALICYLIC ACID [Concomitant]
     Active Substance: ASPIRIN
  5. NITRO DUR [Concomitant]
  6. PROLIA [Suspect]
     Active Substance: DENOSUMAB
     Indication: OSTEOPOROSIS POSTMENOPAUSAL
     Dosage: 60 MG, Q6MO
     Route: 058
     Dates: start: 20140424
  7. VITAMIN D                          /00107901/ [Concomitant]
     Active Substance: ERGOCALCIFEROL
  8. MODUXIN [Concomitant]
  9. CALCIUM [Concomitant]
     Active Substance: CALCIUM

REACTIONS (10)
  - Cystitis [Recovered/Resolved]
  - Pain in extremity [Unknown]
  - Spinal pain [Recovered/Resolved]
  - Pyrexia [Unknown]
  - Kyphosis [Unknown]
  - Hypoaesthesia [Unknown]
  - Varicose vein [Unknown]
  - Back pain [Unknown]
  - Nausea [Unknown]
  - Asthenia [Unknown]

NARRATIVE: CASE EVENT DATE: 2014
